FAERS Safety Report 15879320 (Version 1)
Quarter: 2019Q1

REPORT INFORMATION
  Report Type: Spontaneous
  Country: GR (occurrence: GR)
  Receive Date: 20190128
  Receipt Date: 20190128
  Transmission Date: 20190417
  Serious: Yes (Life-Threatening, Hospitalization)
  Sender: FDA-Public Use
  Company Number: GR-GLAXOSMITHKLINE-GR2019013055

PATIENT
  Age: 34 Year
  Sex: Female
  Weight: 57 kg

DRUGS (3)
  1. KLARICID [Suspect]
     Active Substance: CLARITHROMYCIN
     Indication: BRONCHITIS
     Dosage: 2 DF, QD
     Route: 048
     Dates: start: 20190107, end: 20190110
  2. AEROLIN [Suspect]
     Active Substance: ALBUTEROL
     Indication: BRONCHITIS
     Dosage: 2 DF, BID
     Route: 055
     Dates: start: 20190107, end: 20190110
  3. DEXA-RHINASPRAY [Suspect]
     Active Substance: DEXAMETHASONE ISONICOTINATE\NEOMYCIN SULFATE\TRAMAZOLINE HYDROCHLORIDE
     Indication: PRODUCT USED FOR UNKNOWN INDICATION
     Dosage: 1 DF, QD
     Route: 045
     Dates: start: 20190107, end: 20190112

REACTIONS (7)
  - Dyspepsia [Recovered/Resolved]
  - Phobia [Recovered/Resolved]
  - Diarrhoea [Recovered/Resolved]
  - Illusion [Recovered/Resolved]
  - Rash [Recovering/Resolving]
  - Sleep disorder [Recovered/Resolved]
  - Psychomotor hyperactivity [Recovered/Resolved]

NARRATIVE: CASE EVENT DATE: 20190109
